FAERS Safety Report 10359330 (Version 1)
Quarter: 2014Q3

REPORT INFORMATION
  Report Type: Spontaneous
  Country: US (occurrence: US)
  Receive Date: 20140804
  Receipt Date: 20140804
  Transmission Date: 20150326
  Serious: Yes (Other)
  Sender: FDA-Public Use
  Company Number: US-JNJFOC-20140715217

PATIENT
  Age: 39 Year
  Sex: Female
  Weight: 58.97 kg

DRUGS (4)
  1. DURAGESIC [Suspect]
     Active Substance: FENTANYL
     Indication: BACK PAIN
     Route: 062
  2. DURAGESIC [Suspect]
     Active Substance: FENTANYL
     Indication: BACK PAIN
     Route: 062
  3. DURAGESIC [Suspect]
     Active Substance: FENTANYL
     Indication: BACK PAIN
     Route: 062
  4. DURAGESIC [Suspect]
     Active Substance: FENTANYL
     Indication: BACK PAIN
     Route: 062
     Dates: start: 2012

REACTIONS (12)
  - Drug ineffective [Unknown]
  - Drug dependence [Unknown]
  - Drug administered at inappropriate site [Unknown]
  - Diarrhoea [Unknown]
  - Anxiety [Unknown]
  - Product quality issue [Unknown]
  - Drug withdrawal syndrome [Unknown]
  - Feeling abnormal [Unknown]
  - Hyperhidrosis [Unknown]
  - Wrong technique in drug usage process [Unknown]
  - Piloerection [Unknown]
  - Product physical issue [Unknown]

NARRATIVE: CASE EVENT DATE: 201407
